FAERS Safety Report 5746409-5 (Version None)
Quarter: 2008Q2

REPORT INFORMATION
  Report Type: 
  Country: None (occurrence: None)
  Receive Date: 20080520
  Receipt Date: 20080520
  Transmission Date: 20081010
  Serious: Yes (Other)
  Sender: FDA-Public Use
  Company Number: None

PATIENT
  Age: 66 Year
  Sex: Female
  Weight: 63.5036 kg

DRUGS (14)
  1. AMOXICILLIN 875 [Suspect]
     Indication: SINUSITIS
     Dosage: ONE TABLET TWICE A DAY PO
     Route: 048
     Dates: start: 20080506, end: 20080516
  2. LEVOTHYROXINE SODIUM [Concomitant]
  3. PROGESTERON CREAM [Concomitant]
  4. PREGNENOLONE [Concomitant]
  5. FOSAMAX [Concomitant]
  6. MULTIVITAMIN [Concomitant]
  7. GARLIC [Concomitant]
  8. HAWTHORN BERRY [Concomitant]
  9. CALCIUM-MAGNESIUM-ZINC [Concomitant]
  10. VITAMIN D [Concomitant]
  11. VITAMIN E [Concomitant]
  12. VITAMIN B6 [Concomitant]
  13. VITAMIN B-12 [Concomitant]
  14. PROBIOTIC [Concomitant]

REACTIONS (5)
  - DRUG HYPERSENSITIVITY [None]
  - PHOTOPSIA [None]
  - RASH [None]
  - VISUAL DISTURBANCE [None]
  - VITREOUS FLOATERS [None]
